FAERS Safety Report 7622417-4 (Version None)
Quarter: 2011Q3

REPORT INFORMATION
  Report Type: 
  Country: None (occurrence: None)
  Receive Date: 20110720
  Receipt Date: 20110210
  Transmission Date: 20111222
  Serious: Yes (Hospitalization)
  Sender: FDA-Public Use
  Company Number: US-MYLANLABS-2011S1002904

PATIENT
  Age: 41 Year
  Sex: Female

DRUGS (16)
  1. CARAFATE [Concomitant]
     Route: 048
  2. ALBUTEROL [Concomitant]
     Dosage: 1-2 PUFFS EVERY 4-6 HOURS AS NEEDED
     Route: 055
  3. METOCLOPRAMIDE [Concomitant]
     Route: 048
  4. ASPIRIN [Concomitant]
     Route: 048
  5. LISINOPRIL [Concomitant]
  6. PRAVACHOL [Concomitant]
  7. FLONASE [Concomitant]
     Dosage: 2 SPRAYS IN EACH NOSTRIL
  8. OMEPRAZOLE [Concomitant]
     Route: 048
  9. TOPAMAX [Concomitant]
     Route: 048
  10. CALTRATE + D /00188401/ [Concomitant]
  11. TRAMADOL HYDROCHLORIDE [Suspect]
     Indication: FIBROMYALGIA
     Route: 048
     Dates: end: 20110109
  12. FUROSEMIDE [Concomitant]
     Route: 048
  13. MIRALAX [Concomitant]
     Route: 048
  14. INSULIN [Concomitant]
     Indication: TYPE 1 DIABETES MELLITUS
     Dosage: INJECTION PER SLIDING SCALE
  15. LANTUS [Concomitant]
     Indication: TYPE 1 DIABETES MELLITUS
     Dosage: INJECTION
  16. MILNACIPRAN HYDROCHLORIDE [Suspect]
     Indication: FIBROMYALGIA
     Route: 048
     Dates: start: 20110108, end: 20110109

REACTIONS (1)
  - SEROTONIN SYNDROME [None]
